FAERS Safety Report 8093044-2 (Version None)
Quarter: 2012Q1

REPORT INFORMATION
  Report Type: 
  Country: None (occurrence: None)
  Receive Date: 20120128
  Receipt Date: 20110914
  Transmission Date: 20120608
  Serious: No
  Sender: FDA-Public Use
  Company Number: PR-ABBOTT-11P-131-0733398-00

PATIENT
  Sex: Female
  Weight: 75.818 kg

DRUGS (8)
  1. ULTRAM [Concomitant]
     Indication: PRODUCT USED FOR UNKNOWN INDICATION
     Route: 048
  2. ASCORBIC ACID [Concomitant]
     Indication: SUPPLEMENTATION THERAPY
     Route: 048
  3. HUMIRA [Suspect]
     Indication: RHEUMATOID ARTHRITIS
     Dosage: 1 EVERY 15 DAYS
     Route: 058
  4. NEURONTIN [Concomitant]
     Indication: PRODUCT USED FOR UNKNOWN INDICATION
     Route: 048
  5. NORFLEX [Concomitant]
     Indication: PRODUCT USED FOR UNKNOWN INDICATION
     Route: 048
  6. KLONOPIN [Concomitant]
     Indication: SLEEP DISORDER THERAPY
     Route: 048
  7. XANAX [Concomitant]
     Indication: SLEEP DISORDER THERAPY
     Route: 048
  8. ELAVIL [Concomitant]
     Indication: SLEEP DISORDER THERAPY
     Route: 048

REACTIONS (5)
  - DEPRESSION [None]
  - INJECTION SITE PRURITUS [None]
  - PANIC ATTACK [None]
  - SKIN DISCOLOURATION [None]
  - PAIN [None]
